FAERS Safety Report 12888810 (Version 4)
Quarter: 2017Q2

REPORT INFORMATION
  Report Type: Report from Study
  Country: US (occurrence: US)
  Receive Date: 20161027
  Receipt Date: 20170612
  Transmission Date: 20170830
  Serious: Yes (Other)
  Sender: FDA-Public Use
  Company Number: PHEH2016US027733

PATIENT
  Age: 60 Year
  Sex: Male
  Weight: 161.1 kg

DRUGS (5)
  1. GILENYA [Suspect]
     Active Substance: FINGOLIMOD HYDROCHLORIDE
     Indication: MULTIPLE SCLEROSIS
     Dosage: 0.5 MG, QD
     Route: 048
     Dates: start: 20160706
  2. VYVANSE [Concomitant]
     Active Substance: LISDEXAMFETAMINE DIMESYLATE
     Indication: FATIGUE
     Dosage: UNK, QD
     Route: 048
  3. AMPYRA [Concomitant]
     Active Substance: DALFAMPRIDINE
     Indication: PRODUCT USED FOR UNKNOWN INDICATION
     Dosage: UNK
     Route: 065
  4. GILENYA [Suspect]
     Active Substance: FINGOLIMOD HYDROCHLORIDE
     Dosage: UNK UNK, QD
     Route: 048
     Dates: start: 20170607
  5. PROZAC [Concomitant]
     Active Substance: FLUOXETINE HYDROCHLORIDE
     Indication: DEPRESSION
     Dosage: UNK, QD
     Route: 048

REACTIONS (14)
  - Immunodeficiency [Not Recovered/Not Resolved]
  - Bradycardia [Recovered/Resolved]
  - Injury [Unknown]
  - Pain [Unknown]
  - Impaired healing [Unknown]
  - Dizziness [Unknown]
  - Drug ineffective [Unknown]
  - Gait disturbance [Unknown]
  - Heart rate decreased [Unknown]
  - Balance disorder [Unknown]
  - Feeling abnormal [Unknown]
  - Central nervous system lesion [Not Recovered/Not Resolved]
  - Urine flow decreased [Unknown]
  - Fatigue [Unknown]

NARRATIVE: CASE EVENT DATE: 201607
